FAERS Safety Report 19069070 (Version 1)
Quarter: 2021Q1

REPORT INFORMATION
  Report Type: Report from Study
  Country: US (occurrence: US)
  Receive Date: 20210329
  Receipt Date: 20210329
  Transmission Date: 20210420
  Serious: Yes (Other)
  Sender: FDA-Public Use
  Company Number: US-JNJFOC-20210339316

PATIENT
  Age: 56 Year
  Sex: Female
  Weight: 95.98 kg

DRUGS (5)
  1. LISINOPRIL. [Concomitant]
     Active Substance: LISINOPRIL
  2. DOXEPIN [Concomitant]
     Active Substance: DOXEPIN
  3. SPRAVATO [Suspect]
     Active Substance: ESKETAMINE
     Dosage: 84 MG, TOTAL 6 DOSES
     Dates: start: 20210222, end: 20210311
  4. SPRAVATO [Suspect]
     Active Substance: ESKETAMINE
     Indication: DEPRESSION
     Dosage: 56 MG, TOTAL 1 DOSE
     Dates: start: 20210215, end: 20210215
  5. SPRAVATO [Suspect]
     Active Substance: ESKETAMINE
     Dates: start: 20210318, end: 20210318

REACTIONS (7)
  - Orthostatic hypotension [Recovered/Resolved]
  - Flushing [Recovered/Resolved]
  - Therapeutic product effect increased [Recovered/Resolved]
  - Fall [Recovered/Resolved]
  - Vomiting [Recovered/Resolved]
  - Sedation [Recovered/Resolved]
  - Diarrhoea [Recovered/Resolved]

NARRATIVE: CASE EVENT DATE: 20210312
